FAERS Safety Report 5223982-7 (Version None)
Quarter: 2007Q1

REPORT INFORMATION
  Report Type: 
  Country: None (occurrence: None)
  Receive Date: 20070130
  Receipt Date: 20070124
  Transmission Date: 20070707
  Serious: Yes (Hospitalization)
  Sender: FDA-Public Use
  Company Number: JP-JPN-A200605617

PATIENT
  Age: 77 Year
  Sex: Male
  Weight: 57 kg

DRUGS (16)
  1. VALTREX [Suspect]
     Indication: HERPES ZOSTER
     Dosage: 1000MG THREE TIMES PER DAY
     Route: 048
     Dates: start: 20061216, end: 20061223
  2. ARASENA-A [Concomitant]
     Route: 062
     Dates: start: 20061212
  3. DIOVAN [Concomitant]
     Indication: HYPERTENSION
     Dosage: 80MG PER DAY
     Route: 048
     Dates: start: 20060110
  4. CYANOCOBALAMIN [Concomitant]
     Indication: NEUROPATHY PERIPHERAL
     Dosage: 1500MCG PER DAY
     Route: 048
     Dates: start: 20050704
  5. LOXONIN [Concomitant]
     Indication: PAIN IN EXTREMITY
     Dosage: 180MG PER DAY
     Route: 048
     Dates: start: 20050704
  6. MARZULENE-S [Concomitant]
     Indication: GASTRITIS
     Dosage: 1.5G PER DAY
     Route: 048
     Dates: start: 20050704
  7. POLYFUL [Concomitant]
     Indication: IRRITABLE BOWEL SYNDROME
     Route: 048
     Dates: start: 20050728
  8. OPALMON [Concomitant]
     Indication: SPINAL COLUMN STENOSIS
     Dates: start: 20050803
  9. NORVASC [Concomitant]
     Indication: HYPERTENSION
     Dosage: 5MG PER DAY
     Route: 048
     Dates: end: 20061222
  10. LENDORMIN [Concomitant]
     Indication: INSOMNIA
     Route: 048
  11. AMOBAN [Concomitant]
     Indication: INSOMNIA
     Dosage: 10MG PER DAY
     Route: 048
  12. ROHYPNOL [Concomitant]
     Indication: INSOMNIA
     Route: 048
  13. MYSLEE [Concomitant]
     Indication: INSOMNIA
     Route: 048
     Dates: start: 20060718
  14. UFT [Concomitant]
     Indication: COLON CANCER
     Route: 048
     Dates: start: 20051108, end: 20061212
  15. CONIEL [Concomitant]
     Indication: HYPERTENSION
     Dosage: 4MG PER DAY
     Route: 048
     Dates: start: 20061226
  16. ALLOPURINOL SODIUM [Concomitant]
     Indication: HYPERURICAEMIA
     Route: 048
     Dates: start: 20060516, end: 20061226

REACTIONS (5)
  - DEPRESSED LEVEL OF CONSCIOUSNESS [None]
  - DIZZINESS [None]
  - HEADACHE [None]
  - MUSCULAR WEAKNESS [None]
  - RENAL FAILURE ACUTE [None]
